FAERS Safety Report 23104771 (Version 1)
Quarter: 2023Q4

REPORT INFORMATION
  Report Type: Spontaneous
  Country: US (occurrence: US)
  Receive Date: 20231025
  Receipt Date: 20231025
  Transmission Date: 20240109
  Serious: No
  Sender: FDA-Public Use
  Company Number: US-SA-SAC20231018001006

PATIENT
  Age: 29 Year
  Sex: Female

DRUGS (1)
  1. DUPIXENT [Suspect]
     Active Substance: DUPILUMAB
     Dosage: 300 MG, QOW
     Route: 058
     Dates: end: 20230714

REACTIONS (5)
  - Condition aggravated [Unknown]
  - Therapeutic product effect incomplete [Unknown]
  - Dry skin [Unknown]
  - Pruritus [Unknown]
  - Injection site reaction [Unknown]

NARRATIVE: CASE EVENT DATE: 20230101
